FAERS Safety Report 7329122 (Version 2)
Quarter: 2014Q1

REPORT INFORMATION
  Report Type: Spontaneous
  Country: US (occurrence: None)
  Receive Date: 20100305
  Receipt Date: 20140225
  Transmission Date: 20141002
  Serious: Yes (Other)
  Sender: FDA-Public Use
  Company Number: 2010S1000763

PATIENT
  Age: 59 Year
  Sex: Male

DRUGS (9)
  1. SODIUM PHOSPHATE [Suspect]
     Indication: COLONOSCOPY
     Dosage: PO
     Route: 048
     Dates: start: 20040725, end: 20040726
  2. ATIVAN (LORAZEPAM) [Concomitant]
  3. ZETIA (EZETIMBE) [Concomitant]
  4. HYZAAR (HYDROCHLOROTHIAZIDE, LOSARTAN POTASSIUM) [Concomitant]
  5. ACIPHEX (RABEPRAZOLE SODIUM) [Concomitant]
  6. ZOLOFT (SERTRALINE HYDROCHLORIDE) [Concomitant]
  7. RHINCORT (BUDESONIDE) [Concomitant]
  8. MAXAIR (PIRBUTEROL ACETATE) [Concomitant]
  9. VIAGRA (SILDENAFIL CITRATE) [Concomitant]

REACTIONS (6)
  - Renal disorder [None]
  - Blood creatinine increased [None]
  - Viral pharyngitis [None]
  - Renal failure chronic [None]
  - Nephrosclerosis [None]
  - Acute phosphate nephropathy [None]
